FAERS Safety Report 10305587 (Version 1)
Quarter: 2014Q3

REPORT INFORMATION
  Report Type: Spontaneous
  Country: US (occurrence: US)
  Receive Date: 20140715
  Receipt Date: 20140715
  Transmission Date: 20150326
  Serious: No
  Sender: FDA-Public Use
  Company Number: US-009507513-1407USA004180

PATIENT
  Age: 34 Year
  Sex: Male

DRUGS (3)
  1. XOPENEX [Concomitant]
     Active Substance: LEVALBUTEROL HYDROCHLORIDE
  2. PROVENTIL [Suspect]
     Active Substance: ALBUTEROL
     Indication: ASTHMA EXERCISE INDUCED
     Dosage: 90 MCG, TWO PUFFS EVERY 4 HOURS AS NEEDED
     Route: 055
     Dates: start: 2013
  3. PROVENTIL [Suspect]
     Active Substance: ALBUTEROL
     Indication: DYSPNOEA

REACTIONS (2)
  - Overdose [Unknown]
  - Dyspnoea [Not Recovered/Not Resolved]

NARRATIVE: CASE EVENT DATE: 201406
